FAERS Safety Report 5988130-4 (Version None)
Quarter: 2008Q4

REPORT INFORMATION
  Report Type: 
  Country: None (occurrence: None)
  Receive Date: 20081209
  Receipt Date: 20081209
  Transmission Date: 20090506
  Serious: Yes (Other)
  Sender: FDA-Public Use
  Company Number: None

PATIENT
  Age: 11 Year
  Sex: Female
  Weight: 44.8 kg

DRUGS (1)
  1. LAMOTRIGINE [Suspect]
     Dosage: 100 MG BID PO
     Route: 048
     Dates: start: 20081202, end: 20081205

REACTIONS (4)
  - ABNORMAL BEHAVIOUR [None]
  - HYPOPHAGIA [None]
  - INSOMNIA [None]
  - PRODUCT QUALITY ISSUE [None]
